FAERS Safety Report 9676248 (Version 1)
Quarter: 2013Q4

REPORT INFORMATION
  Report Type: Spontaneous
  Country: US (occurrence: US)
  Receive Date: 20131107
  Receipt Date: 20131107
  Transmission Date: 20140711
  Serious: No
  Sender: FDA-Public Use
  Company Number: US-ENDO PHARMACEUTICALS INC.-METC20120003

PATIENT
  Age: 32 Year
  Sex: Female

DRUGS (1)
  1. METHOCARBAMOL TABLETS 750MG [Suspect]
     Indication: PRODUCT USED FOR UNKNOWN INDICATION
     Dosage: UNKNOWN
     Route: 048
     Dates: start: 20120606

REACTIONS (2)
  - Coeliac disease [Not Recovered/Not Resolved]
  - Nausea [Not Recovered/Not Resolved]
